FAERS Safety Report 9523958 (Version 2)
Quarter: 2014Q1

REPORT INFORMATION
  Report Type: Spontaneous
  Country: SE (occurrence: None)
  Receive Date: 20130912
  Receipt Date: 20140328
  Transmission Date: 20141002
  Serious: Yes (Hospitalization, Disabling, Other)
  Sender: FDA-Public Use
  Company Number: JPI-P-032500

PATIENT
  Age: 37 Year
  Sex: Female

DRUGS (2)
  1. XYREM [Suspect]
     Indication: NARCOLEPSY
     Route: 048
     Dates: start: 201209
  2. TRADOLAN (TRAMADOL HYDROCHLORIDE) [Concomitant]

REACTIONS (3)
  - Sleep disorder [None]
  - Paranoia [None]
  - Hallucination, auditory [None]
